FAERS Safety Report 7962593-7 (Version None)
Quarter: 2011Q4

REPORT INFORMATION
  Report Type: 
  Country: None (occurrence: None)
  Receive Date: 20111207
  Receipt Date: 20111122
  Transmission Date: 20120403
  Serious: No
  Sender: FDA-Public Use
  Company Number: US-ROXANE LABORATORIES, INC.-2011-RO-01674RO

PATIENT
  Age: 53 Year
  Sex: Female

DRUGS (1)
  1. FLUTICASONE PROPIONATE [Suspect]
     Indication: SEASONAL ALLERGY
     Route: 055
     Dates: start: 20111122, end: 20111122

REACTIONS (3)
  - NASAL INFLAMMATION [None]
  - PRODUCT ODOUR ABNORMAL [None]
  - UPPER-AIRWAY COUGH SYNDROME [None]
